FAERS Safety Report 7051029-9 (Version None)
Quarter: 2010Q4

REPORT INFORMATION
  Report Type: 
  Country: None (occurrence: None)
  Receive Date: 20101019
  Receipt Date: 20101007
  Transmission Date: 20110411
  Serious: Yes (Hospitalization)
  Sender: FDA-Public Use
  Company Number: GB-JNJFOC-20101002666

PATIENT
  Age: 34 Year
  Sex: Female
  Weight: 73 kg

DRUGS (3)
  1. INFLIXIMAB, RECOMBINANT [Suspect]
     Indication: RHEUMATOID ARTHRITIS
     Route: 042
  2. GOLD [Suspect]
     Indication: PRODUCT USED FOR UNKNOWN INDICATION
     Route: 030
  3. MYCOPHENOLATE MOFETIL [Concomitant]

REACTIONS (2)
  - CHILLS [None]
  - PYREXIA [None]
